FAERS Safety Report 5738508-9 (Version None)
Quarter: 2008Q2

REPORT INFORMATION
  Report Type: 
  Country: None (occurrence: None)
  Receive Date: 20080515
  Receipt Date: 20080512
  Transmission Date: 20081010
  Serious: Yes (Disabling)
  Sender: FDA-Public Use
  Company Number: JP-SP-2008-00748

PATIENT
  Age: 59 Year
  Sex: Male

DRUGS (9)
  1. IMMUCYST [Suspect]
     Indication: BLADDER CANCER
     Route: 043
     Dates: start: 20051111, end: 20051216
  2. IMMUCYST [Suspect]
     Route: 043
     Dates: start: 20051111, end: 20051216
  3. IMMUCYST [Suspect]
     Route: 043
     Dates: start: 20051111, end: 20051216
  4. NAFTOPIDIL [Concomitant]
     Dates: start: 20050722, end: 20060127
  5. GLYBURIDE [Concomitant]
     Dates: start: 20020201
  6. VOGLIBOSE [Concomitant]
     Dates: start: 20020201
  7. BENAZEPRIL HYDROCHLORIDE [Concomitant]
     Dates: start: 20020201
  8. AMLODIPINE BESILATE [Concomitant]
     Dates: start: 20020201
  9. INSULIN HUMAN(GENETICAL RECOMBINATION) [Concomitant]
     Dates: start: 20020201

REACTIONS (8)
  - BLOOD BILIRUBIN INCREASED [None]
  - DYSURIA [None]
  - HAEMOGLOBIN DECREASED [None]
  - HYDRONEPHROSIS [None]
  - PROTEIN URINE PRESENT [None]
  - PYREXIA [None]
  - RED BLOOD CELL COUNT DECREASED [None]
  - RENAL IMPAIRMENT [None]
